FAERS Safety Report 18351872 (Version 2)
Quarter: 2022Q1

REPORT INFORMATION
  Report Type: Report from Study
  Country: US (occurrence: US)
  Receive Date: 20201006
  Receipt Date: 20220225
  Transmission Date: 20220423
  Serious: No
  Sender: FDA-Public Use
  Company Number: US-NOVARTISTESTPH-NVSC2020US269983

PATIENT
  Sex: Female

DRUGS (1)
  1. ENTRESTO [Suspect]
     Active Substance: SACUBITRIL\VALSARTAN
     Indication: Cardiac failure
     Dosage: 50 MG, (SACUBITRIL: 24MG AND VALSARTAN:26MG)
     Route: 065

REACTIONS (3)
  - Polyuria [Unknown]
  - Dysuria [Unknown]
  - Anaesthetic complication [Unknown]
